FAERS Safety Report 17003014 (Version 1)
Quarter: 2019Q4

REPORT INFORMATION
  Report Type: Spontaneous
  Country: US (occurrence: US)
  Receive Date: 20191107
  Receipt Date: 20191107
  Transmission Date: 20200122
  Serious: No
  Sender: FDA-Public Use
  Company Number: US-ASTRAZENECA-2019SF45729

PATIENT

DRUGS (1)
  1. BEVESPI AEROSPHERE [Suspect]
     Active Substance: FORMOTEROL FUMARATE\GLYCOPYRROLATE
     Indication: BLOOD TRYPSIN DECREASED
     Dosage: UNKNOWN
     Route: 055
     Dates: start: 2019

REACTIONS (2)
  - Product dose omission [Unknown]
  - Dyspnoea [Unknown]
